FAERS Safety Report 7709583-7 (Version None)
Quarter: 2011Q3

REPORT INFORMATION
  Report Type: 
  Country: None (occurrence: None)
  Receive Date: 20110819
  Receipt Date: 20110812
  Transmission Date: 20111222
  Serious: Yes (Other)
  Sender: FDA-Public Use
  Company Number: 1010373

PATIENT
  Sex: Female
  Weight: 73 kg

DRUGS (3)
  1. ONDANSETRON [Concomitant]
  2. CARBOPLATIN [Suspect]
     Indication: PRODUCT USED FOR UNKNOWN INDICATION
     Dosage: 805.0MG, INTRAVENOUS
     Route: 042
  3. DEXAMETHASONE [Concomitant]

REACTIONS (4)
  - THROAT TIGHTNESS [None]
  - OXYGEN SATURATION DECREASED [None]
  - FLUSHING [None]
  - PRURITUS [None]
